FAERS Safety Report 9637083 (Version 2)
Quarter: 2014Q1

REPORT INFORMATION
  Report Type: Spontaneous
  Country: US (occurrence: US)
  Receive Date: 20131022
  Receipt Date: 20140225
  Transmission Date: 20141002
  Serious: Yes (Other)
  Sender: FDA-Public Use
  Company Number: US-BRISTOL-MYERS SQUIBB COMPANY-19549567

PATIENT
  Age: 77 Year
  Sex: Female

DRUGS (8)
  1. BYETTA [Suspect]
     Indication: TYPE 2 DIABETES MELLITUS
     Dates: start: 20110112, end: 201201
  2. HCTZ [Concomitant]
     Route: 048
  3. LISINOPRIL [Concomitant]
     Route: 048
  4. LANTUS [Concomitant]
     Dosage: 75 UNITS SQ QUS
     Route: 058
  5. CARVEDILOL [Concomitant]
     Route: 048
  6. OMEPRAZOLE [Concomitant]
     Route: 048
  7. DILTIAZEM HCL [Concomitant]
     Route: 048
  8. ATARAX [Concomitant]
     Indication: PRURITUS
     Dosage: PRN
     Route: 048

REACTIONS (1)
  - Pancreatic carcinoma [Unknown]
